FAERS Safety Report 26048141 (Version 2)
Quarter: 2025Q4

REPORT INFORMATION
  Report Type: Spontaneous
  Country: EU (occurrence: EU)
  Receive Date: 20251114
  Receipt Date: 20251126
  Transmission Date: 20260117
  Serious: Yes (Death, Hospitalization)
  Sender: MYLAN
  Company Number: EU-MYLANLABS-2025M1095710

PATIENT
  Age: 32 Year
  Sex: Male

DRUGS (12)
  1. EPINEPHRINE [Suspect]
     Active Substance: EPINEPHRINE
     Indication: Hypotension
     Dosage: 1 MILLIGRAM, FIVE INJECTIONS
  2. EPINEPHRINE [Suspect]
     Active Substance: EPINEPHRINE
     Indication: Bradycardia
     Dosage: 1 MILLIGRAM, FIVE INJECTIONS
     Route: 065
  3. EPINEPHRINE [Suspect]
     Active Substance: EPINEPHRINE
     Dosage: 1 MILLIGRAM, FIVE INJECTIONS
     Route: 065
  4. EPINEPHRINE [Suspect]
     Active Substance: EPINEPHRINE
     Dosage: 1 MILLIGRAM, FIVE INJECTIONS
  5. LORAZEPAM [Concomitant]
     Active Substance: LORAZEPAM
     Indication: Product used for unknown indication
     Dosage: UNK
  6. LORAZEPAM [Concomitant]
     Active Substance: LORAZEPAM
     Dosage: UNK
     Route: 048
  7. LORAZEPAM [Concomitant]
     Active Substance: LORAZEPAM
     Dosage: UNK
     Route: 048
  8. LORAZEPAM [Concomitant]
     Active Substance: LORAZEPAM
     Dosage: UNK
  9. SODIUM NITRITE [Concomitant]
     Active Substance: SODIUM NITRITE
     Indication: Product used for unknown indication
     Dosage: 100 GRAM
  10. SODIUM NITRITE [Concomitant]
     Active Substance: SODIUM NITRITE
     Dosage: 100 GRAM
     Route: 048
  11. SODIUM NITRITE [Concomitant]
     Active Substance: SODIUM NITRITE
     Dosage: 100 GRAM
     Route: 048
  12. SODIUM NITRITE [Concomitant]
     Active Substance: SODIUM NITRITE
     Dosage: 100 GRAM

REACTIONS (1)
  - Drug ineffective [Fatal]
